FAERS Safety Report 16914937 (Version 1)
Quarter: 2019Q4

REPORT INFORMATION
  Report Type: Spontaneous
  Country: SE (occurrence: SE)
  Receive Date: 20191014
  Receipt Date: 20191014
  Transmission Date: 20200122
  Serious: Yes (Disabling)
  Sender: FDA-Public Use
  Company Number: SE-PFIZER INC-2019435469

PATIENT
  Age: 76 Year
  Sex: Male

DRUGS (17)
  1. ALIMTA [Suspect]
     Active Substance: PEMETREXED DISODIUM
     Indication: LUNG ADENOCARCINOMA
     Dosage: 1050 MG, SINGLE (CURE 1)
     Route: 042
     Dates: start: 20190702, end: 20190702
  2. MIRAPEXIN [Concomitant]
     Active Substance: PRAMIPEXOLE
     Dosage: 0.18 MG, AS NEEDED
     Dates: start: 20170912
  3. ALIMTA [Suspect]
     Active Substance: PEMETREXED DISODIUM
     Dosage: 1050 MG, SINGLE (CURE 2)
     Route: 042
     Dates: start: 20190724, end: 20190724
  4. LOCOID [Concomitant]
     Active Substance: HYDROCORTISONE BUTYRATE
     Dosage: UNK (1 TIME DAILY AS NEEDED)
     Dates: start: 20190524
  5. TROMBYL [Concomitant]
     Active Substance: ASPIRIN
     Dosage: 75 MG, 1X/DAY
     Dates: start: 20170414
  6. OXASCAND [Concomitant]
     Active Substance: OXAZEPAM
     Dosage: 5 MG, AS NEEDED (1 TABLET AS NEEDED, AS HIGH AS 3 TABLETS/DAY)
     Dates: start: 20190515
  7. CARBOPLATIN. [Suspect]
     Active Substance: CARBOPLATIN
     Dosage: 675 MG, SINGLE (CURE 2)
     Route: 042
     Dates: start: 20190724, end: 20190724
  8. ATORVASTATIN CALCIUM. [Suspect]
     Active Substance: ATORVASTATIN CALCIUM
     Dosage: UNK
     Route: 048
     Dates: start: 2017, end: 20190809
  9. IMOVANE [Concomitant]
     Active Substance: ZOPICLONE
     Dosage: 5 MG, AS NEEDED
     Dates: start: 20190625
  10. DICLOFENAC [Concomitant]
     Active Substance: DICLOFENAC
     Dosage: 50 MG, AS NEEDED (1 TABLET AS NEEDED, AS HIGH AS 3/DAY)
     Dates: start: 20180507
  11. DOXAZOSIN [Concomitant]
     Active Substance: DOXAZOSIN MESYLATE
     Dosage: 4 MG, 1X/DAY
     Dates: start: 20181106
  12. TRIOBE [CYANOCOBALAMIN;FOLIC ACID;PYRIDOXINE HYDROCHLORIDE] [Concomitant]
     Dosage: 1 DF, 1X/DAY
     Dates: start: 20190625
  13. MOLLIPECT [BROMHEXINE HYDROCHLORIDE;EPHEDRINE HYDROCHLORIDE] [Concomitant]
     Dosage: 15 ML, AS NEEDED (AS HIGH AS 4 TIMES/DAY)
     Dates: start: 20171030
  14. EMOVAT [Concomitant]
     Dosage: UNK (1 TIME DAILY AS NEEDED)
     Dates: start: 20190521
  15. CARBOPLATIN. [Suspect]
     Active Substance: CARBOPLATIN
     Indication: LUNG ADENOCARCINOMA
     Dosage: 675 MG, SINGLE (CURE 1)
     Route: 042
     Dates: start: 20190702, end: 20190702
  16. ZOPICLONE [Concomitant]
     Active Substance: ZOPICLONE
     Dosage: 7.5 MG, AS NEEDED (1 TABLET AS NEEDED FOR THE NIGHT)
     Dates: start: 20170413
  17. LOSARTAN AND HYDROCHLOROTHIAZIDE [Concomitant]
     Active Substance: HYDROCHLOROTHIAZIDE\LOSARTAN POTASSIUM
     Dosage: 1 DF, 1X/DAY
     Dates: start: 20180508

REACTIONS (4)
  - Polyneuropathy [Not Recovered/Not Resolved]
  - Off label use [Unknown]
  - Myopathy [Not Recovered/Not Resolved]
  - Product use in unapproved indication [Unknown]

NARRATIVE: CASE EVENT DATE: 20190702
